FAERS Safety Report 5043349-4 (Version None)
Quarter: 2006Q2

REPORT INFORMATION
  Report Type: 
  Country: None (occurrence: None)
  Receive Date: 20060601
  Receipt Date: 20060227
  Transmission Date: 20061013
  Serious: No
  Sender: FDA-Public Use
  Company Number: 2006PV009337

PATIENT
  Age: 59 Year
  Sex: Female
  Weight: 82.5547 kg

DRUGS (14)
  1. BYETTA [Suspect]
     Indication: DIABETES MELLITUS
     Dosage: 5 MCG;BID;SC
     Route: 058
     Dates: start: 20060220, end: 20060220
  2. ATENOLOL [Concomitant]
  3. AVALIDE [Concomitant]
  4. METHIMAZOLE [Concomitant]
  5. CILOSTAZOL [Concomitant]
  6. TRICOR [Concomitant]
  7. ZADUET [Concomitant]
  8. ASPIRIN [Concomitant]
  9. VITAMIN E [Concomitant]
  10. DIAZEPAM [Concomitant]
  11. AMBIEN [Concomitant]
  12. ACETAMINOPHEN [Concomitant]
  13. ALEVE (CAPLET) [Concomitant]
  14. PEPCID [Concomitant]

REACTIONS (3)
  - DECREASED APPETITE [None]
  - OESOPHAGEAL SPASM [None]
  - PALPITATIONS [None]
